FAERS Safety Report 15208526 (Version 1)
Quarter: 2018Q3

REPORT INFORMATION
  Report Type: Spontaneous
  Country: US (occurrence: US)
  Receive Date: 20180727
  Receipt Date: 20180727
  Transmission Date: 20181010
  Serious: Yes (Death)
  Sender: FDA-Public Use
  Company Number: US-TAIHO ONCOLOGY  INC-EU-2018-00282

PATIENT
  Age: 58 Year
  Sex: Female

DRUGS (12)
  1. ACETAMINOPHEN. [Concomitant]
     Active Substance: ACETAMINOPHEN
     Dosage: NI
  2. NEXIUM [Concomitant]
     Active Substance: ESOMEPRAZOLE MAGNESIUM
     Dosage: NI
  3. GABAPENTIN. [Concomitant]
     Active Substance: GABAPENTIN
     Dosage: NI
  4. PROCRIT [Concomitant]
     Active Substance: ERYTHROPOIETIN
     Dosage: NI
  5. POTASSIUM CHLORIDE. [Concomitant]
     Active Substance: POTASSIUM CHLORIDE
     Dosage: NI
  6. URSODIOL. [Concomitant]
     Active Substance: URSODIOL
     Dosage: NI
  7. LOVENOX [Concomitant]
     Active Substance: ENOXAPARIN SODIUM
     Dosage: NI
  8. ZOFRAN [Concomitant]
     Active Substance: ONDANSETRON HYDROCHLORIDE
     Dosage: NI
  9. LONSURF [Suspect]
     Active Substance: TIPIRACIL HYDROCHLORIDE\TRIFLURIDINE
     Indication: COLON CANCER
     Dosage: 35 MG AM, 50 MG PM
     Route: 048
     Dates: start: 20170218, end: 201705
  10. PROCHLORPERAZINE. [Concomitant]
     Active Substance: PROCHLORPERAZINE
     Dosage: NI
  11. MORPHINE [Concomitant]
     Active Substance: MORPHINE
     Dosage: NI
  12. MS CONTIN [Concomitant]
     Active Substance: MORPHINE SULFATE
     Dosage: NI

REACTIONS (3)
  - Drug ineffective [Unknown]
  - Death [Fatal]
  - Product quality issue [None]

NARRATIVE: CASE EVENT DATE: 20170505
